FAERS Safety Report 23636572 (Version 2)
Quarter: 2024Q2

REPORT INFORMATION
  Report Type: Spontaneous
  Country: GB (occurrence: None)
  Receive Date: 20240315
  Receipt Date: 20240405
  Transmission Date: 20240716
  Serious: Yes (Death, Hospitalization, Other)
  Sender: FDA-Public Use
  Company Number: None

PATIENT
  Age: 85 Year
  Sex: Female

DRUGS (2)
  1. METHOTREXATE [Suspect]
     Active Substance: METHOTREXATE
     Indication: Rheumatoid arthritis
     Dosage: INCREASING TO 15MG AS PER PROTOCOL
     Dates: start: 20230415, end: 2023
  2. PREDNISOLONE [Concomitant]
     Active Substance: PREDNISOLONE
     Indication: Polymyalgia rheumatica
     Dates: start: 2009

REACTIONS (5)
  - Pneumocystis jirovecii pneumonia [Fatal]
  - Immunosuppression [Unknown]
  - Dyspnoea [Unknown]
  - Respiratory failure [Unknown]
  - General physical health deterioration [Unknown]

NARRATIVE: CASE EVENT DATE: 20230101
